FAERS Safety Report 4972965-0 (Version None)
Quarter: 2006Q2

REPORT INFORMATION
  Report Type: 
  Country: None (occurrence: None)
  Receive Date: 20060410
  Receipt Date: 20060322
  Transmission Date: 20061013
  Serious: Yes (Death, Other)
  Sender: FDA-Public Use
  Company Number: US200601000930

PATIENT
  Age: 68 Year
  Sex: Male
  Weight: 104.3 kg

DRUGS (10)
  1. ALIMTA [Suspect]
     Indication: NON-SMALL CELL LUNG CANCER
     Dosage: 1150 MG, INTRAVENOUS
     Route: 042
     Dates: start: 20051208
  2. CYANOCOBALAMIN [Concomitant]
  3. FOLIC ACID [Concomitant]
  4. PROTONIX [Concomitant]
  5. LASIX [Concomitant]
  6. TARCEVA                                   USA/ (ERLOTINIB) [Concomitant]
  7. BENICAR [Concomitant]
  8. ADVAIR DISKUS 100/50 [Concomitant]
  9. SPIRIVA [Concomitant]
  10. ALBUTEROL [Concomitant]

REACTIONS (43)
  - AORTIC ANEURYSM [None]
  - ASTHENIA [None]
  - BLOOD BICARBONATE DECREASED [None]
  - BLOOD GLUCOSE ABNORMAL [None]
  - BLOOD PH DECREASED [None]
  - BLOOD PRESSURE DECREASED [None]
  - COAGULOPATHY [None]
  - CONDITION AGGRAVATED [None]
  - CONFUSIONAL STATE [None]
  - DEHYDRATION [None]
  - DIABETIC NEPHROPATHY [None]
  - DIALYSIS [None]
  - DIZZINESS [None]
  - DYSSTASIA [None]
  - EXERCISE TOLERANCE DECREASED [None]
  - FATIGUE [None]
  - FLUSHING [None]
  - HAEMATOCRIT DECREASED [None]
  - HAEMOGLOBIN DECREASED [None]
  - HEADACHE [None]
  - HEART RATE IRREGULAR [None]
  - HEPATIC FAILURE [None]
  - HYPERKALAEMIA [None]
  - HYPOCALCAEMIA [None]
  - INTERNATIONAL NORMALISED RATIO INCREASED [None]
  - LABILE BLOOD PRESSURE [None]
  - NEPHROPATHY TOXIC [None]
  - OCCULT BLOOD POSITIVE [None]
  - OEDEMA PERIPHERAL [None]
  - OXYGEN SATURATION DECREASED [None]
  - PAIN [None]
  - PLATELET COUNT DECREASED [None]
  - PLEURAL EFFUSION [None]
  - PNEUMONIA [None]
  - PO2 DECREASED [None]
  - PROTHROMBIN TIME PROLONGED [None]
  - RED BLOOD CELL COUNT DECREASED [None]
  - REFUSAL OF TREATMENT BY PATIENT [None]
  - RENAL FAILURE [None]
  - RENAL VESSEL DISORDER [None]
  - RESPIRATORY DISORDER [None]
  - WHEEZING [None]
  - WHITE BLOOD CELL COUNT INCREASED [None]
